FAERS Safety Report 5376292-1 (Version None)
Quarter: 2007Q2

REPORT INFORMATION
  Report Type: 
  Country: None (occurrence: None)
  Receive Date: 20070627
  Receipt Date: 20070627
  Transmission Date: 20071010
  Serious: Yes (Other)
  Sender: FDA-Public Use
  Company Number: None

PATIENT
  Age: 42 Year
  Sex: Male
  Weight: 82.4 kg

DRUGS (3)
  1. ISOVUE-300 [Suspect]
     Indication: COMPUTERISED TOMOGRAM
     Dosage: 120 ML IV 2 ML/MIN
     Route: 042
  2. DOCUSATE/SENNA [Concomitant]
  3. BORTEZOMIB [Concomitant]

REACTIONS (2)
  - PRURITUS [None]
  - URTICARIA [None]
